FAERS Safety Report 9942208 (Version 1)
Quarter: 2014Q1

REPORT INFORMATION
  Report Type: Report from Study
  Country: US (occurrence: US)
  Receive Date: 20140303
  Receipt Date: 20140303
  Transmission Date: 20141002
  Serious: No
  Sender: FDA-Public Use
  Company Number: US-ABBVIE-13P-163-1042567-00

PATIENT
  Age: 32 Year
  Sex: Female

DRUGS (11)
  1. HUMIRA [Suspect]
     Indication: RHEUMATOID ARTHRITIS
     Dates: start: 20121214
  2. PLAQUENIL [Concomitant]
     Indication: RHEUMATOID ARTHRITIS
  3. CELEBREX [Concomitant]
     Indication: PRODUCT USED FOR UNKNOWN INDICATION
  4. ZANAFLEX [Concomitant]
     Indication: RHEUMATOID ARTHRITIS
     Dosage: AT NIGHT
  5. TYLENOL #3 [Concomitant]
     Indication: PAIN
  6. HYDROCODONE [Concomitant]
     Indication: PAIN
  7. SYNTHROID [Concomitant]
     Indication: THYROID DISORDER
  8. SINGULAIR [Concomitant]
     Indication: ASTHMA
  9. ALBUTEROL INH [Concomitant]
     Indication: ASTHMA
  10. ADDERALL [Concomitant]
     Indication: ATTENTION DEFICIT/HYPERACTIVITY DISORDER
  11. KLONOPIN [Concomitant]
     Indication: ANXIETY

REACTIONS (5)
  - Fatigue [Not Recovered/Not Resolved]
  - Tremor [Not Recovered/Not Resolved]
  - Paraesthesia [Not Recovered/Not Resolved]
  - Paraesthesia [Not Recovered/Not Resolved]
  - Device malfunction [Unknown]
